FAERS Safety Report 4738847-4 (Version None)
Quarter: 2005Q3

REPORT INFORMATION
  Report Type: 
  Country: None (occurrence: None)
  Receive Date: 20050804
  Receipt Date: 20050727
  Transmission Date: 20060218
  Serious: Yes (Other)
  Sender: FDA-Public Use
  Company Number: 2005104167

PATIENT
  Age: 86 Year
  Sex: Female
  Weight: 40 kg

DRUGS (7)
  1. HALCION [Suspect]
     Indication: INSOMNIA
     Dosage: 0.75 (1 IN 1 D), ORAL
     Route: 048
     Dates: start: 19950101, end: 20050628
  2. VASLOAN (VERAPAMIL HYDROCHLORIDE) [Concomitant]
  3. PRAVASTATIN [Concomitant]
  4. DIART (AZOSEMIDE) [Concomitant]
  5. GRANDAXIN (TOFISOPAM) [Concomitant]
  6. PURSENNID (SENNA LEAF) [Concomitant]
  7. ALPRAZOLAM [Concomitant]

REACTIONS (14)
  - AMMONIA INCREASED [None]
  - ANXIETY [None]
  - BACK PAIN [None]
  - COMPRESSION FRACTURE [None]
  - CONDITION AGGRAVATED [None]
  - DECREASED ACTIVITY [None]
  - DEPRESSED LEVEL OF CONSCIOUSNESS [None]
  - DRUG WITHDRAWAL CONVULSIONS [None]
  - ELECTROLYTE IMBALANCE [None]
  - EPILEPSY [None]
  - FOAMING AT MOUTH [None]
  - GRAND MAL CONVULSION [None]
  - IRRITABILITY [None]
  - SUICIDAL IDEATION [None]
